FAERS Safety Report 8485375-9 (Version None)
Quarter: 2012Q3

REPORT INFORMATION
  Report Type: 
  Country: None (occurrence: None)
  Receive Date: 20120703
  Receipt Date: 20120619
  Transmission Date: 20120928
  Serious: Yes (Hospitalization, Other)
  Sender: FDA-Public Use
  Company Number: DE-FRI-1000030831

PATIENT
  Sex: Female
  Weight: 68 kg

DRUGS (8)
  1. MEMANTINE HCL [Suspect]
     Indication: DEMENTIA ALZHEIMER'S TYPE
     Dosage: 5 MG
     Route: 048
     Dates: start: 20120327, end: 20120419
  2. BISOPROLOL FUMARATE [Concomitant]
     Dosage: 5 MG
  3. PANTOPRAZOLE [Concomitant]
  4. AMITRIPTYLINE HCL [Concomitant]
  5. AMILORIDE HYDROCHLORIDE [Concomitant]
  6. TENSOFLUX [Concomitant]
  7. DYTIDE [Concomitant]
  8. SIMVASTATIN [Concomitant]
     Dosage: 40 MG

REACTIONS (3)
  - TRANSIENT ISCHAEMIC ATTACK [None]
  - APHASIA [None]
  - FACIAL PARESIS [None]
